FAERS Safety Report 21924228 (Version 2)
Quarter: 2023Q1

REPORT INFORMATION
  Report Type: Report from Study
  Country: BR (occurrence: None)
  Receive Date: 20230130
  Receipt Date: 20230307
  Transmission Date: 20230418
  Serious: Yes (Other)
  Sender: FDA-Public Use
  Company Number: BR-Merck Healthcare KGaA-9379657

PATIENT
  Sex: Male

DRUGS (9)
  1. REBIF [Suspect]
     Active Substance: INTERFERON BETA-1A
     Indication: Multiple sclerosis
     Dates: start: 20031202, end: 20040301
  2. REBIF [Suspect]
     Active Substance: INTERFERON BETA-1A
     Dates: start: 20041101, end: 20050901
  3. REBIF [Suspect]
     Active Substance: INTERFERON BETA-1A
     Dates: start: 20051001, end: 20061001
  4. REBIF [Suspect]
     Active Substance: INTERFERON BETA-1A
     Dates: start: 20070715, end: 20090107
  5. REBIF [Suspect]
     Active Substance: INTERFERON BETA-1A
     Dates: start: 20090115, end: 20111230
  6. REBIF [Suspect]
     Active Substance: INTERFERON BETA-1A
     Dates: start: 20120914, end: 20200824
  7. INTERFERON BETA-1A [Suspect]
     Active Substance: INTERFERON BETA-1A
     Indication: Multiple sclerosis
     Route: 058
     Dates: start: 20200826
  8. AMITRIPTYLINE [Concomitant]
     Active Substance: AMITRIPTYLINE
     Indication: Product used for unknown indication
  9. THIAMINE HYDROCHLORIDE [Concomitant]
     Active Substance: THIAMINE HYDROCHLORIDE
     Indication: Product used for unknown indication

REACTIONS (2)
  - Erectile dysfunction [Not Recovered/Not Resolved]
  - Libido increased [Unknown]
